FAERS Safety Report 4583792-0 (Version None)
Quarter: 2005Q1

REPORT INFORMATION
  Report Type: 
  Country: None (occurrence: None)
  Receive Date: 20050216
  Receipt Date: 20041201
  Transmission Date: 20050727
  Serious: No
  Sender: FDA-Public Use
  Company Number: US-GLAXOSMITHKLINE-A0535711A

PATIENT
  Age: 76 Year
  Sex: Female
  Weight: 49.1 kg

DRUGS (8)
  1. LOTRONEX [Suspect]
     Indication: IRRITABLE BOWEL SYNDROME
     Dosage: 1MG PER DAY
     Route: 048
     Dates: start: 20041101
  2. DIGOXIN [Concomitant]
  3. IMODIUM [Concomitant]
  4. QUESTRAN [Concomitant]
  5. MIACALCIN [Concomitant]
  6. VERAPAMIL [Concomitant]
  7. IRON TABLETS [Concomitant]
  8. DONNATAL [Concomitant]

REACTIONS (1)
  - MYALGIA [None]
